FAERS Safety Report 20761068 (Version 1)
Quarter: 2022Q2

REPORT INFORMATION
  Report Type: Report from Study
  Country: BE (occurrence: BE)
  Receive Date: 20220428
  Receipt Date: 20220428
  Transmission Date: 20220721
  Serious: Yes (Hospitalization)
  Sender: FDA-Public Use
  Company Number: BE-BRISTOL-MYERS SQUIBB COMPANY-2022-026587

PATIENT
  Age: 77 Year
  Sex: Male
  Weight: 65 kg

DRUGS (2)
  1. NIVOLUMAB [Suspect]
     Active Substance: NIVOLUMAB
     Indication: Mesothelioma
     Route: 042
     Dates: start: 20220331
  2. IPILIMUMAB [Suspect]
     Active Substance: IPILIMUMAB
     Indication: Mesothelioma
     Route: 042
     Dates: start: 20220331

REACTIONS (1)
  - General physical health deterioration [Recovered/Resolved]

NARRATIVE: CASE EVENT DATE: 20220414
